FAERS Safety Report 24742624 (Version 1)
Quarter: 2024Q4

REPORT INFORMATION
  Report Type: Spontaneous
  Country: US (occurrence: None)
  Receive Date: 20241216
  Receipt Date: 20241216
  Transmission Date: 20250114
  Serious: Yes (Hospitalization, Other)
  Sender: Public
  Company Number: None

PATIENT
  Age: 66 Year
  Sex: Female

DRUGS (1)
  1. TERIFLUNOMIDE [Suspect]
     Active Substance: TERIFLUNOMIDE

REACTIONS (11)
  - Back pain [None]
  - Arthralgia [None]
  - Arthralgia [None]
  - Neuropathy peripheral [None]
  - Arthritis [None]
  - Renal disorder [None]
  - Urinary tract infection [None]
  - Blood glucose increased [None]
  - Blood pressure increased [None]
  - Therapy interrupted [None]
  - Chromaturia [None]
